FAERS Safety Report 8017574 (Version 3)
Quarter: 2013Q3

REPORT INFORMATION
  Report Type: Spontaneous
  Country: US (occurrence: US)
  Receive Date: 20110630
  Receipt Date: 20130924
  Transmission Date: 20140515
  Serious: Yes (Other)
  Sender: FDA-Public Use
  Company Number: US-US-EMD SERONO, INC.-7067414

PATIENT
  Age: 62 Year
  Sex: Male

DRUGS (3)
  1. REBIF [Suspect]
     Indication: PRODUCT USED FOR UNKNOWN INDICATION
     Route: 058
     Dates: start: 20100802
  2. REBIF [Suspect]
     Route: 058
  3. NIASPAN [Concomitant]
     Indication: BLOOD CHOLESTEROL ABNORMAL

REACTIONS (4)
  - Benign hepatic neoplasm [Not Recovered/Not Resolved]
  - Alanine aminotransferase increased [Unknown]
  - Aspartate aminotransferase increased [Unknown]
  - Injection site erythema [Recovering/Resolving]
